FAERS Safety Report 15797393 (Version 1)
Quarter: 2019Q1

REPORT INFORMATION
  Report Type: Spontaneous
  Country: US (occurrence: US)
  Receive Date: 20190108
  Receipt Date: 20190108
  Transmission Date: 20190417
  Serious: No
  Sender: FDA-Public Use
  Company Number: US-PFIZER INC-2019006715

PATIENT
  Age: 80 Year
  Sex: Female

DRUGS (10)
  1. SYNTHROID [Concomitant]
     Active Substance: LEVOTHYROXINE SODIUM
     Dosage: UNK
  2. CRESTOR [Concomitant]
     Active Substance: ROSUVASTATIN CALCIUM
     Dosage: UNK
  3. PRISTIQ EXTENDED-RELEASE [Concomitant]
     Active Substance: DESVENLAFAXINE SUCCINATE
     Indication: DEPRESSION
     Dosage: UNK
  4. XANAX [Concomitant]
     Active Substance: ALPRAZOLAM
     Dosage: 1 MG, AS NEEDED [1MG TWICE A DAY AS NEEDED]
  5. AMBIEN [Concomitant]
     Active Substance: ZOLPIDEM TARTRATE
     Dosage: UNK
  6. OMEPRAZOLE. [Concomitant]
     Active Substance: OMEPRAZOLE
     Dosage: UNK
  7. AMLODIPINE BESILATE [Suspect]
     Active Substance: AMLODIPINE BESYLATE
     Dosage: 2.5 MG, 1X/DAY [TAKE AFTER DINNER WITH MEALS]
  8. JANUMET [Concomitant]
     Active Substance: METFORMIN HYDROCHLORIDE\SITAGLIPTIN PHOSPHATE
     Dosage: UNK
  9. HCTZ [Concomitant]
     Active Substance: HYDROCHLOROTHIAZIDE
     Dosage: 25 MG, UNK (HER MORNING ROUTINE)
  10. LOSARTAN. [Concomitant]
     Active Substance: LOSARTAN
     Dosage: 100 MG, UNK

REACTIONS (2)
  - Fatigue [Unknown]
  - Insomnia [Unknown]
